FAERS Safety Report 15569671 (Version 1)
Quarter: 2018Q4

REPORT INFORMATION
  Report Type: Spontaneous
  Country: US (occurrence: US)
  Receive Date: 20181025
  Receipt Date: 20181025
  Transmission Date: 20190205
  Serious: No
  Sender: FDA-Public Use
  Company Number: None

PATIENT
  Age: 47 Year
  Sex: Male

DRUGS (1)
  1. ABILIFY MAINTENA [Suspect]
     Active Substance: ARIPIPRAZOLE
     Indication: SCHIZOPHRENIA
     Dosage: ?          OTHER STRENGTH:400 MG/VL;?
     Route: 030
     Dates: start: 20171019

REACTIONS (3)
  - Arthropathy [None]
  - Skin discolouration [None]
  - Hypoaesthesia [None]

NARRATIVE: CASE EVENT DATE: 20181007
